FAERS Safety Report 14940511 (Version 1)
Quarter: 2018Q2

REPORT INFORMATION
  Report Type: Spontaneous
  Country: FR (occurrence: FR)
  Receive Date: 20180525
  Receipt Date: 20180525
  Transmission Date: 20180711
  Serious: Yes (Other)
  Sender: FDA-Public Use
  Company Number: FR-MERCK KGAA-2048478

PATIENT
  Age: 53 Year
  Sex: Male

DRUGS (1)
  1. NOVOTHYROX [Suspect]
     Active Substance: LEVOTHYROXINE SODIUM
     Indication: PRODUCT USED FOR UNKNOWN INDICATION

REACTIONS (14)
  - Intellectual disability [None]
  - Muscle atrophy [None]
  - Decreased activity [None]
  - Tension headache [None]
  - Insomnia [None]
  - Tendonitis [None]
  - Asthenia [None]
  - Fatigue [None]
  - Irritability [None]
  - Social avoidant behaviour [None]
  - Hypokinesia [None]
  - Nausea [None]
  - Headache [None]
  - Anti-thyroid antibody positive [None]

NARRATIVE: CASE EVENT DATE: 20170127
